FAERS Safety Report 20321410 (Version 1)
Quarter: 2022Q1

REPORT INFORMATION
  Report Type: Spontaneous
  Country: US (occurrence: US)
  Receive Date: 20220111
  Receipt Date: 20220111
  Transmission Date: 20220423
  Serious: No
  Sender: FDA-Public Use
  Company Number: US-SUN PHARMACEUTICAL INDUSTRIES LTD-2021R1-317136

PATIENT
  Sex: Male

DRUGS (1)
  1. AMINOLEVULINIC ACID [Suspect]
     Active Substance: AMINOLEVULINIC ACID
     Indication: Actinic keratosis
     Dosage: UNK
     Route: 061

REACTIONS (1)
  - Product dose omission issue [Unknown]
